FAERS Safety Report 12783969 (Version 2)
Quarter: 2016Q4

REPORT INFORMATION
  Report Type: Spontaneous
  Country: CN (occurrence: CN)
  Receive Date: 20160927
  Receipt Date: 20161025
  Transmission Date: 20170207
  Serious: Yes (Hospitalization, Other)
  Sender: FDA-Public Use
  Company Number: CN-NOVOPROD-510950

PATIENT
  Age: 59 Year
  Sex: Female
  Weight: 51 kg

DRUGS (4)
  1. CEFDINIR. [Suspect]
     Active Substance: CEFDINIR
     Indication: COUGH
     Dosage: 0.2 G, BID
     Route: 048
     Dates: start: 20160523, end: 20160531
  2. LIAN HUAN ER DING [Suspect]
     Active Substance: FELODIPINE
     Indication: COUGH
     Dosage: 6 G, TID
     Route: 048
     Dates: start: 20160523, end: 20160531
  3. FLUVASTATIN SODIUM. [Suspect]
     Active Substance: FLUVASTATIN SODIUM
     Indication: ARTERIOSCLEROSIS
     Dosage: 80 MG, QD
     Route: 048
     Dates: start: 20160512, end: 20160530
  4. NOVORAPID [Suspect]
     Active Substance: INSULIN ASPART
     Indication: TYPE 2 DIABETES MELLITUS
     Dosage: 12 U, BID BEFORE BREAKFAST AND BEFORE SUPPER
     Route: 058
     Dates: start: 20160512, end: 20160531

REACTIONS (1)
  - Hepatic function abnormal [Recovering/Resolving]

NARRATIVE: CASE EVENT DATE: 20160531
